FAERS Safety Report 8996671 (Version 1)
Quarter: 2012Q4

REPORT INFORMATION
  Report Type: Spontaneous
  Country: TW (occurrence: None)
  Receive Date: 20121220
  Receipt Date: 20121220
  Transmission Date: 20130627
  Serious: Yes (Hospitalization)
  Sender: FDA-Public Use
  Company Number: NSR_00747_2012

PATIENT
  Age: 60 Year
  Sex: Male

DRUGS (8)
  1. FAMOTIDINE (FAMOTIDINE) [Suspect]
     Indication: PEPTIC ULCER
     Dosage: (DF)
     Route: 048
  2. ASPIRIN [Concomitant]
  3. LABETALOL [Concomitant]
  4. NIFEDIPINE [Concomitant]
  5. TERAZOSIN [Concomitant]
  6. METFORMIN [Concomitant]
  7. GLIMEPIRIDE [Concomitant]
  8. ACARBOSE [Concomitant]

REACTIONS (7)
  - Muscular weakness [None]
  - Mental impairment [None]
  - Dysarthria [None]
  - Dysphagia [None]
  - Quadriparesis [None]
  - Leukocytosis [None]
  - Cerebrovascular accident [None]
